FAERS Safety Report 23815013 (Version 1)
Quarter: 2024Q2

REPORT INFORMATION
  Report Type: Spontaneous
  Country: DE (occurrence: None)
  Receive Date: 20240503
  Receipt Date: 20240503
  Transmission Date: 20240715
  Serious: Yes (Other)
  Sender: FDA-Public Use
  Company Number: 2024A098931

PATIENT
  Age: 74 Year
  Sex: Male
  Weight: 75 kg

DRUGS (2)
  1. DAPAGLIFLOZIN [Suspect]
     Active Substance: DAPAGLIFLOZIN
     Indication: Arrhythmia
     Dosage: 1 X 10 MG IN THE MORNING
     Route: 048
     Dates: start: 20240131
  2. DAPAGLIFLOZIN [Suspect]
     Active Substance: DAPAGLIFLOZIN
     Indication: Atrial fibrillation
     Dosage: 1 X 10 MG IN THE MORNING
     Route: 048
     Dates: start: 20240131

REACTIONS (1)
  - Phimosis [Recovering/Resolving]

NARRATIVE: CASE EVENT DATE: 20240315
